FAERS Safety Report 15955498 (Version 1)
Quarter: 2019Q1

REPORT INFORMATION
  Report Type: Spontaneous
  Country: US (occurrence: US)
  Receive Date: 20190122
  Receipt Date: 20190122
  Transmission Date: 20190417
  Serious: No
  Sender: FDA-Public Use
  Company Number: None

PATIENT
  Age: 71 Year
  Sex: Male

DRUGS (1)
  1. INLYTA [Suspect]
     Active Substance: AXITINIB
     Indication: RENAL CELL CARCINOMA
     Dates: start: 201804, end: 20190121

REACTIONS (4)
  - Fall [None]
  - Fatigue [None]
  - Muscular weakness [None]
  - Quality of life decreased [None]

NARRATIVE: CASE EVENT DATE: 20180404
